FAERS Safety Report 4776696-1 (Version None)
Quarter: 2005Q3

REPORT INFORMATION
  Report Type: 
  Country: None (occurrence: None)
  Receive Date: 20050923
  Receipt Date: 20050912
  Transmission Date: 20060218
  Serious: Yes (Death)
  Sender: FDA-Public Use
  Company Number: US-JNJFOC-20031002405

PATIENT
  Sex: Female

DRUGS (15)
  1. INFLIXIMAB [Suspect]
     Indication: RHEUMATOID ARTHRITIS
     Route: 042
  2. METHOTREXATE [Concomitant]
  3. PERCOCET [Concomitant]
  4. PERCOCET [Concomitant]
  5. OXYCONTIN [Concomitant]
  6. BEXTRA [Concomitant]
  7. TYLOX [Concomitant]
  8. TYLOX [Concomitant]
  9. METOPROLOL [Concomitant]
  10. FOLIC ACID [Concomitant]
  11. NORVASC [Concomitant]
  12. DIGITEK [Concomitant]
  13. PREDNISONE [Concomitant]
  14. CAPTOPRIL [Concomitant]
  15. LASIX [Concomitant]

REACTIONS (1)
  - AORTIC ANEURYSM [None]
